FAERS Safety Report 20042886 (Version 2)
Quarter: 2021Q4

REPORT INFORMATION
  Report Type: Spontaneous
  Country: AE (occurrence: AE)
  Receive Date: 20211108
  Receipt Date: 20211118
  Transmission Date: 20220303
  Serious: Yes (Other)
  Sender: FDA-Public Use
  Company Number: AE-GLAXOSMITHKLINE-AECH2021EME079112

PATIENT
  Age: 38 Year
  Sex: Female

DRUGS (1)
  1. ACETAMINOPHEN\ASPIRIN\CAFFEINE [Suspect]
     Active Substance: ACETAMINOPHEN\ASPIRIN\CAFFEINE
     Indication: Headache
     Dosage: 1 DF
     Dates: start: 202110

REACTIONS (4)
  - Hallucination [Recovered/Resolved]
  - Feeling abnormal [Recovered/Resolved]
  - Nightmare [Recovered/Resolved]
  - Drug ineffective [Unknown]

NARRATIVE: CASE EVENT DATE: 20211104
